FAERS Safety Report 8760224 (Version 6)
Quarter: 2013Q3

REPORT INFORMATION
  Report Type: Spontaneous
  Country: US (occurrence: US)
  Receive Date: 20120829
  Receipt Date: 20130904
  Transmission Date: 20140515
  Serious: Yes (Hospitalization, Other)
  Sender: FDA-Public Use
  Company Number: US-009507513-1208USA008537

PATIENT
  Sex: Female
  Weight: 44.44 kg

DRUGS (2)
  1. FOSAMAX [Suspect]
     Indication: OSTEOPOROSIS
     Dosage: 70 MG, QW
     Route: 048
     Dates: end: 2011
  2. ALENDRONATE SODIUM [Suspect]
     Dosage: 70 MG, QW
     Route: 048

REACTIONS (13)
  - Femur fracture [Recovered/Resolved]
  - Open reduction of fracture [Unknown]
  - Coronary artery bypass [Unknown]
  - Mitral valve replacement [Unknown]
  - Spinal compression fracture [Unknown]
  - Spinal fracture [Unknown]
  - Cardiac disorder [Unknown]
  - Wrist fracture [Unknown]
  - Blood cholesterol increased [Unknown]
  - Anaemia [Unknown]
  - Hypertension [Unknown]
  - Tonsillectomy [Unknown]
  - Arthralgia [Recovered/Resolved]
